FAERS Safety Report 22253861 (Version 1)
Quarter: 2023Q2

REPORT INFORMATION
  Report Type: Spontaneous
  Country: US (occurrence: US)
  Receive Date: 20230426
  Receipt Date: 20230426
  Transmission Date: 20230721
  Serious: Yes (Other)
  Sender: FDA-Public Use
  Company Number: US-BAYER-2023A050068

PATIENT
  Age: 73 Year
  Sex: Female

DRUGS (2)
  1. KERENDIA [Suspect]
     Active Substance: FINERENONE
     Dosage: UNK
  2. KERENDIA [Suspect]
     Active Substance: FINERENONE
     Dosage: UNK
     Dates: end: 20230413

REACTIONS (2)
  - Cerebrovascular accident [None]
  - Product packaging quantity issue [None]
